FAERS Safety Report 8606841 (Version 2)
Quarter: 2013Q3

REPORT INFORMATION
  Report Type: Spontaneous
  Country: US (occurrence: US)
  Receive Date: 20120611
  Receipt Date: 20130723
  Transmission Date: 20140515
  Serious: Yes (Hospitalization)
  Sender: FDA-Public Use
  Company Number: US-ASTRAZENECA-2012SE35814

PATIENT
  Age: 469 Month
  Sex: Female

DRUGS (7)
  1. NEXIUM [Suspect]
     Indication: GASTROOESOPHAGEAL REFLUX DISEASE
     Route: 048
     Dates: start: 2002, end: 2009
  2. PRILOSEC OTC [Suspect]
     Indication: GASTROOESOPHAGEAL REFLUX DISEASE
     Route: 048
     Dates: start: 2009, end: 2012
  3. DEXILANT [Concomitant]
     Indication: GASTROOESOPHAGEAL REFLUX DISEASE
  4. ZANTAC [Concomitant]
     Dosage: 150 MG ONCE OR TWICE DAILY
  5. ZANTAC [Concomitant]
     Dosage: 75 MG ONCE OR TWICE DAILY
  6. TUMS [Concomitant]
  7. TYLENOL [Concomitant]

REACTIONS (9)
  - Lower limb fracture [Unknown]
  - Osteoporosis [Unknown]
  - Multiple fractures [Unknown]
  - Tibia fracture [Unknown]
  - Osteoarthritis [Unknown]
  - Bone disorder [Unknown]
  - Atrophy [Unknown]
  - Arthritis [Unknown]
  - Vitamin D deficiency [Unknown]
